FAERS Safety Report 7205645-1 (Version None)
Quarter: 2010Q4

REPORT INFORMATION
  Report Type: 
  Country: None (occurrence: None)
  Receive Date: 20101231
  Receipt Date: 20101220
  Transmission Date: 20110411
  Serious: Yes (Other)
  Sender: FDA-Public Use
  Company Number: US-ELI_LILLY_AND_COMPANY-US201005003108

PATIENT
  Sex: Female

DRUGS (3)
  1. FORTEO [Suspect]
     Indication: OSTEOPOROSIS
     Dosage: 20 UG, DAILY (1/D)
  2. FORTEO [Suspect]
     Dosage: 20 UG, DAILY (1/D)
  3. CALCIUM [Concomitant]

REACTIONS (8)
  - BONE PAIN [None]
  - DYSPEPSIA [None]
  - KNEE OPERATION [None]
  - NAIL DISORDER [None]
  - NAUSEA [None]
  - PAIN [None]
  - STRESS [None]
  - WEIGHT INCREASED [None]
